FAERS Safety Report 18328167 (Version 3)
Quarter: 2020Q4

REPORT INFORMATION
  Report Type: Spontaneous
  Country: US (occurrence: US)
  Receive Date: 20200930
  Receipt Date: 20201014
  Transmission Date: 20210113
  Serious: Yes (Other)
  Sender: FDA-Public Use
  Company Number: US-009507513-2009USA010256

PATIENT
  Sex: Male

DRUGS (17)
  1. BUPROPION. [Concomitant]
     Active Substance: BUPROPION
  2. ALIMTA [Concomitant]
     Active Substance: PEMETREXED DISODIUM
     Indication: NON-SMALL CELL LUNG CANCER
     Dosage: 500 MILLIGRAM/SQ. METER
     Route: 042
     Dates: start: 201511
  3. FOLIC ACID. [Concomitant]
     Active Substance: FOLIC ACID
  4. ALDACTONE [Concomitant]
     Active Substance: SPIRONOLACTONE
  5. KEYTRUDA [Suspect]
     Active Substance: PEMBROLIZUMAB
     Indication: NON-SMALL CELL LUNG CANCER
     Dosage: 200 MILLIGRAM, Q3W
     Route: 042
     Dates: start: 20190819, end: 20191023
  6. AMLODIPINE [Concomitant]
     Active Substance: AMLODIPINE BESYLATE
  7. BUSPIRONE HYDROCHLORIDE. [Concomitant]
     Active Substance: BUSPIRONE HYDROCHLORIDE
  8. SILDENAFIL CITRATE. [Concomitant]
     Active Substance: SILDENAFIL CITRATE
     Dosage: UNK, PRN
  9. PEMETREXED DISODIUM [Suspect]
     Active Substance: PEMETREXED DISODIUM
     Dosage: 500 MILLIGRAM/SQ. METER
     Dates: start: 20191115
  10. PREDNISONE. [Concomitant]
     Active Substance: PREDNISONE
  11. ASPIRIN. [Concomitant]
     Active Substance: ASPIRIN
  12. KEYTRUDA [Suspect]
     Active Substance: PEMBROLIZUMAB
     Dosage: 200 MILLIGRAM, Q3W
     Route: 042
     Dates: start: 20191115, end: 20200924
  13. CARBOPLATIN. [Suspect]
     Active Substance: CARBOPLATIN
     Dosage: AREA UNDER CURVE (AUC) 5
     Dates: start: 20190819, end: 20191023
  14. PEMETREXED DISODIUM [Suspect]
     Active Substance: PEMETREXED DISODIUM
     Dosage: 500 MILLIGRAM/SQ. METER
     Dates: start: 20190819, end: 20191023
  15. CLONIDINE. [Concomitant]
     Active Substance: CLONIDINE
  16. POTASSIUM CHLORIDE. [Concomitant]
     Active Substance: POTASSIUM CHLORIDE
  17. FLUCONAZOLE. [Concomitant]
     Active Substance: FLUCONAZOLE

REACTIONS (9)
  - Superinfection [Unknown]
  - Skin fissures [Unknown]
  - Inappropriate schedule of product administration [Unknown]
  - Pemphigoid [Recovering/Resolving]
  - Musculoskeletal stiffness [Unknown]
  - Hypoaesthesia [Unknown]
  - Rash pruritic [Unknown]
  - Exfoliative rash [Unknown]
  - Rash erythematous [Unknown]
